FAERS Safety Report 4285759-9 (Version None)
Quarter: 2004Q1

REPORT INFORMATION
  Report Type: 
  Country: None (occurrence: None)
  Receive Date: 20040204
  Receipt Date: 20040204
  Transmission Date: 20041129
  Serious: Yes (Other)
  Sender: FDA-Public Use
  Company Number: None

PATIENT
  Age: 29 Year
  Sex: Female
  Weight: 47.6277 kg

DRUGS (3)
  1. PROZAC [Suspect]
     Indication: ANXIETY
     Dosage: ONCE/TWICE DAILY ORAL
     Route: 048
     Dates: start: 20000506, end: 20000605
  2. SERZONE [Suspect]
     Indication: ANXIETY
     Dosage: ONCE DAILY ORAL
     Route: 048
     Dates: start: 20000505, end: 20000505
  3. EFFEXOR [Suspect]
     Indication: ANXIETY
     Dosage: ONCE DAILY ORAL
     Dates: start: 20000505, end: 20000505

REACTIONS (18)
  - ABNORMAL BEHAVIOUR [None]
  - ANXIETY [None]
  - DEPRESSION [None]
  - DIZZINESS [None]
  - DRUG INEFFECTIVE [None]
  - FEAR [None]
  - HALLUCINATION [None]
  - INSOMNIA [None]
  - LYME DISEASE [None]
  - NERVE INJURY [None]
  - NERVOUSNESS [None]
  - NIGHTMARE [None]
  - PHOBIA [None]
  - POSTPARTUM DISORDER [None]
  - PSYCHOMOTOR HYPERACTIVITY [None]
  - SUICIDAL IDEATION [None]
  - TREMOR [None]
  - VISUAL DISTURBANCE [None]
